FAERS Safety Report 7279377-8 (Version None)
Quarter: 2011Q1

REPORT INFORMATION
  Report Type: 
  Country: None (occurrence: None)
  Receive Date: 20110208
  Receipt Date: 20110203
  Transmission Date: 20110831
  Serious: Yes (Hospitalization)
  Sender: FDA-Public Use
  Company Number: IT-SHIRE-SPV1-2011-00182

PATIENT
  Age: 57 Year
  Sex: Male

DRUGS (3)
  1. XAGRID [Suspect]
     Indication: MYELOFIBROSIS
     Dosage: UNK UNK, UNKNOWN
     Route: 048
     Dates: start: 20040501
  2. ONCO CARBIDE [Concomitant]
     Indication: ESSENTIAL THROMBOCYTHAEMIA
     Dosage: UNK UNK, UNKNOWN
     Route: 048
     Dates: start: 19960101
  3. ONCO CARBIDE [Concomitant]
     Indication: MYELOFIBROSIS

REACTIONS (1)
  - ISCHAEMIC STROKE [None]
